FAERS Safety Report 20181210 (Version 3)
Quarter: 2022Q1

REPORT INFORMATION
  Report Type: Spontaneous
  Country: DE (occurrence: DE)
  Receive Date: 20211214
  Receipt Date: 20220315
  Transmission Date: 20220423
  Serious: Yes (Hospitalization, Other)
  Sender: FDA-Public Use
  Company Number: DE-BAYER-2021A262610

PATIENT
  Age: 38 Year
  Sex: Male
  Weight: 78 kg

DRUGS (5)
  1. GADOBUTROL [Suspect]
     Active Substance: GADOBUTROL
     Indication: Magnetic resonance imaging
     Dosage: 8 ML, ONCE, CERVICAL SPINE
     Dates: start: 20120720, end: 20120720
  2. GADOBUTROL [Suspect]
     Active Substance: GADOBUTROL
     Indication: Arthralgia
     Dosage: 7 ML, ONCE, LUMBAR SPINE, SACROILIAC JOINT
     Dates: start: 20180711, end: 20180711
  3. GADOBUTROL [Suspect]
     Active Substance: GADOBUTROL
     Indication: Pain in extremity
     Dosage: 7 ML, ONCE, LATERAL BOTH SIDE
     Dates: start: 20180713, end: 20180713
  4. GADOBUTROL [Suspect]
     Active Substance: GADOBUTROL
     Indication: Magnetic resonance imaging spinal
     Dosage: 7 ML, ONCE, LATERAL THIG
     Dates: start: 20180716, end: 20180716
  5. GADOBUTROL [Suspect]
     Active Substance: GADOBUTROL
     Indication: Magnetic resonance imaging

REACTIONS (17)
  - Contrast media toxicity [None]
  - Renal pain [None]
  - Muscle twitching [Not Recovered/Not Resolved]
  - Limb discomfort [None]
  - Paraesthesia [None]
  - Cramp-fasciculation syndrome [None]
  - Myalgia [Not Recovered/Not Resolved]
  - Arthralgia [Not Recovered/Not Resolved]
  - Muscle spasms [Not Recovered/Not Resolved]
  - General physical health deterioration [Not Recovered/Not Resolved]
  - Impaired work ability [Not Recovered/Not Resolved]
  - Nontherapeutic agent blood positive [None]
  - Paralysis [None]
  - Nontherapeutic agent urine positive [None]
  - Fatigue [None]
  - Tachycardia [None]
  - Poor quality sleep [None]

NARRATIVE: CASE EVENT DATE: 20180701
